FAERS Safety Report 4445716-6 (Version None)
Quarter: 2004Q3

REPORT INFORMATION
  Report Type: 
  Country: None (occurrence: None)
  Receive Date: 20040903
  Receipt Date: 20040709
  Transmission Date: 20050211
  Serious: Yes (Hospitalization)
  Sender: FDA-Public Use
  Company Number: 2004-BP-05544BP

PATIENT
  Age: 74 Year
  Sex: Male

DRUGS (4)
  1. AGGRENOX [Suspect]
     Indication: CEREBROVASCULAR ACCIDENT PROPHYLAXIS
     Dosage: SEE TEXT (SEE TEXT,25MG/200MG 1 CAPSULE BID), PO
     Route: 048
     Dates: start: 20040501
  2. NEURONTIN [Concomitant]
  3. NORVASC [Concomitant]
  4. FOLIC ACID [Concomitant]

REACTIONS (1)
  - ARTHRITIS INFECTIVE [None]
